FAERS Safety Report 5369784-2 (Version None)
Quarter: 2007Q2

REPORT INFORMATION
  Report Type: 
  Country: None (occurrence: None)
  Receive Date: 20070621
  Receipt Date: 20070612
  Transmission Date: 20071010
  Serious: Yes (Hospitalization)
  Sender: FDA-Public Use
  Company Number: 163-21880-07060242

PATIENT
  Age: 59 Year
  Sex: Female

DRUGS (13)
  1. REVLIMID [Suspect]
     Indication: OESOPHAGEAL CARCINOMA
     Dosage: 20 MG, QD X 14 DAYS, ORAL
     Route: 048
     Dates: start: 20070522, end: 20070604
  2. DOCETAXEL (DOCETAXEL) [Suspect]
     Indication: OESOPHAGEAL CARCINOMA
     Dosage: 75 MG/M2, Q21 DAYS
     Dates: start: 20070522
  3. ASA (ACTEYLSALICYLIC ACID) [Concomitant]
  4. FERROUS SULFATE TAB [Concomitant]
  5. REMERON [Concomitant]
  6. CENTRUM SILVER (CENTRUM SILVER) [Concomitant]
  7. CALCIUM WITH VITAMIN D (CALCIUM WITH VITAMIN D) [Concomitant]
  8. ZINC (ZINC) (TABLETS) [Concomitant]
  9. VITAMIN B6 (PYRIDOXINE HYDROCHORIDE) [Concomitant]
  10. FLAX DEED OIL (LINSEED OIL) [Concomitant]
  11. DEXAMETHASONE TAB [Concomitant]
  12. POTASSIUM CHLORIDE [Concomitant]
  13. PERCOCET [Concomitant]

REACTIONS (5)
  - GASTRIC ULCER [None]
  - GASTROINTESTINAL HAEMORRHAGE [None]
  - HAEMATEMESIS [None]
  - NAUSEA [None]
  - VOMITING [None]
